FAERS Safety Report 9470951 (Version 1)
Quarter: 2013Q3

REPORT INFORMATION
  Report Type: Spontaneous
  Country: FR (occurrence: FR)
  Receive Date: 20130822
  Receipt Date: 20130822
  Transmission Date: 20140515
  Serious: Yes (Other)
  Sender: FDA-Public Use
  Company Number: FR-ELI_LILLY_AND_COMPANY-FR201308004246

PATIENT
  Age: 36 Year
  Sex: Male

DRUGS (3)
  1. PROZAC [Suspect]
     Dosage: 20 MG, QD
     Route: 048
     Dates: start: 201209
  2. EQUASYM [Interacting]
     Indication: ATTENTION DEFICIT/HYPERACTIVITY DISORDER
     Dosage: 40 MG, BID
     Route: 048
     Dates: start: 201211
  3. REVIA [Concomitant]
     Dosage: 100 MG, QD
     Route: 065

REACTIONS (6)
  - Vasculitis necrotising [Unknown]
  - Musculoskeletal stiffness [Unknown]
  - Arthralgia [Unknown]
  - Purpura [Unknown]
  - Haematoma [Unknown]
  - Drug interaction [Unknown]
